FAERS Safety Report 13052357 (Version 2)
Quarter: 2017Q1

REPORT INFORMATION
  Report Type: Report from Study
  Country: US (occurrence: US)
  Receive Date: 20161221
  Receipt Date: 20170112
  Transmission Date: 20170428
  Serious: Yes (Death, Hospitalization)
  Sender: FDA-Public Use
  Company Number: US-ACTELION-A-US2016-141820

PATIENT
  Age: 76 Year
  Sex: Female
  Weight: 108.39 kg

DRUGS (9)
  1. ADEMPAS [Concomitant]
     Active Substance: RIOCIGUAT
     Dosage: 2 MG, TID
  2. PROTONIX [Concomitant]
     Active Substance: PANTOPRAZOLE SODIUM
  3. ZYRTEC [Concomitant]
     Active Substance: CETIRIZINE HYDROCHLORIDE
  4. METOPROLOL TARTRATE. [Concomitant]
     Active Substance: METOPROLOL TARTRATE
  5. LEVOTHYROXINE. [Concomitant]
     Active Substance: LEVOTHYROXINE
  6. OPSUMIT [Suspect]
     Active Substance: MACITENTAN
     Indication: PULMONARY ARTERIAL HYPERTENSION
     Dosage: 10 MG, QD
     Route: 048
     Dates: start: 201605
  7. ADEMPAS [Concomitant]
     Active Substance: RIOCIGUAT
     Dosage: 2.5 MG, TID
     Dates: start: 20161020
  8. METFORMIN [Concomitant]
     Active Substance: METFORMIN HYDROCHLORIDE
  9. ADEMPAS [Concomitant]
     Active Substance: RIOCIGUAT
     Dosage: .5 MG, TID
     Route: 048

REACTIONS (13)
  - Fluid retention [Not Recovered/Not Resolved]
  - Fatigue [Not Recovered/Not Resolved]
  - General physical health deterioration [Unknown]
  - Condition aggravated [Fatal]
  - Oedema peripheral [Not Recovered/Not Resolved]
  - Dyspnoea [Recovering/Resolving]
  - Asthenia [Unknown]
  - Pulmonary arterial hypertension [Fatal]
  - Gait disturbance [Not Recovered/Not Resolved]
  - Dyspepsia [Recovering/Resolving]
  - Decreased activity [Not Recovered/Not Resolved]
  - Somnolence [Unknown]
  - Dysstasia [Unknown]

NARRATIVE: CASE EVENT DATE: 201608
